FAERS Safety Report 9546814 (Version 2)
Quarter: 2013Q4

REPORT INFORMATION
  Report Type: Spontaneous
  Country: US (occurrence: US)
  Receive Date: 20130924
  Receipt Date: 20131003
  Transmission Date: 20140711
  Serious: Yes (Death, Other)
  Sender: FDA-Public Use
  Company Number: US-AMGEN-USASP2013065807

PATIENT
  Age: 88 Year
  Sex: Female

DRUGS (12)
  1. PROLIA [Suspect]
     Indication: OSTEOPOROSIS POSTMENOPAUSAL
     Route: 065
  2. ASPIRIN [Concomitant]
  3. CALTRATE                           /00944201/ [Concomitant]
  4. SYNTHROID [Concomitant]
  5. IRON [Concomitant]
  6. COREG [Concomitant]
  7. LANOXIN [Concomitant]
  8. LASIX                              /00032601/ [Concomitant]
  9. MINERAL OIL LIGHT [Concomitant]
  10. TYLENOL                            /00020001/ [Concomitant]
  11. OS-CAL 500 + D [Concomitant]
  12. LEVOTHYROXINE SODIUM [Concomitant]
     Dosage: 125 MUG, QD ON AN EMPTY STOMACH IN THE MORNING

REACTIONS (13)
  - Cardiac failure congestive [Fatal]
  - Urinary tract infection [Unknown]
  - Paranoia [Unknown]
  - Heart rate irregular [Unknown]
  - Limb asymmetry [Unknown]
  - Chronic obstructive pulmonary disease [Unknown]
  - Hypothyroidism [Unknown]
  - Mental status changes [Unknown]
  - Pneumonia klebsiella [Unknown]
  - Dehydration [Unknown]
  - Hypercholesterolaemia [Unknown]
  - Anaemia [Unknown]
  - Asthenia [Unknown]
